FAERS Safety Report 5627965-4 (Version None)
Quarter: 2008Q1

REPORT INFORMATION
  Report Type: 
  Country: None (occurrence: None)
  Receive Date: 20080215
  Receipt Date: 20080211
  Transmission Date: 20080703
  Serious: Yes (Other)
  Sender: FDA-Public Use
  Company Number: BR-BRISTOL-MYERS SQUIBB COMPANY-14075063

PATIENT
  Sex: Male
  Weight: 1 kg

DRUGS (6)
  1. AMPHOTERICIN B [Suspect]
  2. CEFOTAXIME SODIUM [Suspect]
  3. AMPICILLIN [Suspect]
  4. AMIKACIN SULFATE [Suspect]
  5. VANCOMYCIN HCL [Suspect]
  6. MEROPENEM [Suspect]

REACTIONS (9)
  - BRAIN ABSCESS [None]
  - CONVULSION [None]
  - DISSEMINATED INTRAVASCULAR COAGULATION [None]
  - ENCEPHALOMALACIA [None]
  - NECROTISING COLITIS [None]
  - PYREXIA [None]
  - RENAL FAILURE ACUTE [None]
  - THROMBOCYTOPENIA [None]
  - VOMITING [None]
